FAERS Safety Report 4817647-0 (Version None)
Quarter: 2005Q3

REPORT INFORMATION
  Report Type: 
  Country: None (occurrence: None)
  Receive Date: 20050929
  Receipt Date: 20050829
  Transmission Date: 20060218
  Serious: No
  Sender: FDA-Public Use
  Company Number: 04P-163-0261650-00

PATIENT
  Age: 77 Year
  Sex: Female
  Weight: 57.6068 kg

DRUGS (10)
  1. HUMIRA [Suspect]
     Indication: RHEUMATOID ARTHRITIS
     Dosage: 40 MG, 1 IN 2 WK, SUBCUTANEOUS
     Route: 058
     Dates: start: 20030401, end: 20050703
  2. RISEDRONATE SODIUM [Concomitant]
  3. METHOTREXATE [Concomitant]
  4. VOLTAREN [Concomitant]
  5. FOLIC ACID [Concomitant]
  6. CALCIUM GLUCONATE [Concomitant]
  7. ESTRACE [Concomitant]
  8. MEDROXYPROGESTERONE ACETATE [Concomitant]
  9. ACETAMINOPHEN [Concomitant]
  10. PREDNISONE [Concomitant]

REACTIONS (6)
  - ALOPECIA [None]
  - BALANCE DISORDER [None]
  - CONDITION AGGRAVATED [None]
  - DIFFICULTY IN WALKING [None]
  - GAIT DISTURBANCE [None]
  - SKIN DISCOLOURATION [None]
